FAERS Safety Report 10660246 (Version 2)
Quarter: 2014Q4

REPORT INFORMATION
  Report Type: Spontaneous
  Country: US (occurrence: US)
  Receive Date: 20141217
  Receipt Date: 20141217
  Transmission Date: 20150529
  Serious: No
  Sender: FDA-Public Use
  Company Number: US-GLAXOSMITHKLINE-A1082057A

PATIENT

DRUGS (1)
  1. VOTRIENT [Suspect]
     Active Substance: PAZOPANIB HYDROCHLORIDE
     Indication: RENAL CANCER
     Dates: start: 20140214

REACTIONS (7)
  - Fatigue [Not Recovered/Not Resolved]
  - Nail disorder [Unknown]
  - Muscle spasms [Unknown]
  - Pain [Unknown]
  - Skin disorder [Unknown]
  - Functional gastrointestinal disorder [Unknown]
  - Decreased appetite [Unknown]
